FAERS Safety Report 7967269-8 (Version None)
Quarter: 2011Q4

REPORT INFORMATION
  Report Type: 
  Country: None (occurrence: None)
  Receive Date: 20111206
  Receipt Date: 20111128
  Transmission Date: 20120403
  Serious: Yes (Hospitalization)
  Sender: FDA-Public Use
  Company Number: AUR-APL-2011-06014

PATIENT
  Age: 69 Year
  Sex: Male
  Weight: 133 kg

DRUGS (3)
  1. DAPTOMYCIN [Suspect]
     Indication: PRODUCT USED FOR UNKNOWN INDICATION
     Dosage: (900 MG,1 D),INTRAVENOUS
     Route: 042
  2. LEVOFLOXACIN [Suspect]
     Indication: PRODUCT USED FOR UNKNOWN INDICATION
     Dosage: 750 MG (750 MG,1 IN 1 D),ORAL
     Route: 048
  3. SIMVASTATIN [Suspect]
     Indication: PRODUCT USED FOR UNKNOWN INDICATION
     Dosage: 40 MG (40 MG,1 IN 1 D)

REACTIONS (5)
  - BLOOD POTASSIUM INCREASED [None]
  - DRUG INTERACTION [None]
  - RHABDOMYOLYSIS [None]
  - MYOPATHY TOXIC [None]
  - BLOOD CREATININE INCREASED [None]
